FAERS Safety Report 11872274 (Version 5)
Quarter: 2016Q2

REPORT INFORMATION
  Report Type: Report from Study
  Country: US (occurrence: US)
  Receive Date: 20151228
  Receipt Date: 20160516
  Transmission Date: 20160815
  Serious: Yes (Death, Hospitalization, Other)
  Sender: FDA-Public Use
  Company Number: US-EXELIXIS-CABO-15005840

PATIENT
  Age: 63 Year
  Sex: Male

DRUGS (12)
  1. COMETRIQ [Suspect]
     Active Substance: CABOZANTINIB S-MALATE
     Indication: THYROID CANCER
     Dosage: 80 MG, QD
     Route: 048
     Dates: start: 20151120, end: 201602
  2. COMETRIQ [Suspect]
     Active Substance: CABOZANTINIB S-MALATE
     Indication: LUNG NEOPLASM MALIGNANT
  3. LEVOTHYROXINE. [Concomitant]
     Active Substance: LEVOTHYROXINE
  4. TUSS-IONEX [Concomitant]
  5. NYSTATIN. [Concomitant]
     Active Substance: NYSTATIN
  6. LIDOCAINE. [Concomitant]
     Active Substance: LIDOCAINE
  7. LORAZEPAM. [Concomitant]
     Active Substance: LORAZEPAM
  8. COMPAZINE [Concomitant]
     Active Substance: PROCHLORPERAZINE MALEATE
  9. PROZAC [Concomitant]
     Active Substance: FLUOXETINE HYDROCHLORIDE
  10. XARELTO [Concomitant]
     Active Substance: RIVAROXABAN
  11. OMEPRAZOLE. [Concomitant]
     Active Substance: OMEPRAZOLE
  12. HOMATROPINE METHYLBROMIDE\HYDROCODONE BITARTRATE [Concomitant]
     Active Substance: HOMATROPINE METHYLBROMIDE\HYDROCODONE BITARTRATE

REACTIONS (13)
  - Malignant neoplasm progression [Fatal]
  - Thrombocytopenia [Unknown]
  - Off label use [Unknown]
  - Headache [Unknown]
  - Oesophageal stenosis [Unknown]
  - Dyspnoea [Recovering/Resolving]
  - Deep vein thrombosis [Unknown]
  - Polycythaemia [Recovering/Resolving]
  - Alopecia [Unknown]
  - Gastrooesophageal reflux disease [Not Recovered/Not Resolved]
  - Liver function test increased [Recovering/Resolving]
  - Dysphagia [Not Recovered/Not Resolved]
  - Vomiting [Recovering/Resolving]

NARRATIVE: CASE EVENT DATE: 20151125
